FAERS Safety Report 17581815 (Version 1)
Quarter: 2020Q1

REPORT INFORMATION
  Report Type: Spontaneous
  Country: US (occurrence: US)
  Receive Date: 20200325
  Receipt Date: 20200325
  Transmission Date: 20200409
  Serious: Yes (Hospitalization)
  Sender: FDA-Public Use
  Company Number: US-BRACCO-2020US01374

PATIENT
  Age: 45 Year
  Sex: Female

DRUGS (1)
  1. ISOVUE-M 300 [Suspect]
     Active Substance: IOPAMIDOL
     Indication: CISTERNOGRAM
     Dosage: 10 ML, SINGLE
     Route: 037
     Dates: start: 20200305, end: 20200305

REACTIONS (3)
  - Meningism [Recovering/Resolving]
  - Limb discomfort [Recovering/Resolving]
  - Hypoaesthesia [Recovering/Resolving]

NARRATIVE: CASE EVENT DATE: 20200305
